FAERS Safety Report 4644063-7 (Version None)
Quarter: 2005Q2

REPORT INFORMATION
  Report Type: 
  Country: None (occurrence: None)
  Receive Date: 20050425
  Receipt Date: 20050418
  Transmission Date: 20051028
  Serious: Yes (Other)
  Sender: FDA-Public Use
  Company Number: PHNU2005DE01660

PATIENT
  Age: 55 Year
  Sex: Male

DRUGS (4)
  1. GLEEVEC [Suspect]
     Indication: HYPEREOSINOPHILIC SYNDROME
     Dosage: 200 MG, QD
     Route: 048
     Dates: start: 20050401
  2. INSULIN RAPID [Concomitant]
     Indication: DIABETES MELLITUS
  3. LANTUS [Concomitant]
     Indication: DIABETES MELLITUS
  4. MARCUMAR [Concomitant]
     Route: 048

REACTIONS (2)
  - HYPERHIDROSIS [None]
  - HYPOGLYCAEMIA [None]
